FAERS Safety Report 6832512-5 (Version None)
Quarter: 2010Q3

REPORT INFORMATION
  Report Type: 
  Country: None (occurrence: None)
  Receive Date: 20100712
  Receipt Date: 20070314
  Transmission Date: 20110219
  Serious: No
  Sender: FDA-Public Use
  Company Number: US-PFIZER INC-2007021068

PATIENT
  Sex: Male

DRUGS (6)
  1. CHANTIX [Suspect]
     Indication: SMOKING CESSATION THERAPY
     Dates: start: 20070301
  2. ACETYLSALICYLIC ACID [Concomitant]
  3. SIMVASTATIN [Concomitant]
  4. GEMFIBROZIL [Concomitant]
  5. TEMAZEPAM [Concomitant]
     Indication: MIDDLE INSOMNIA
  6. NICOTINE [Concomitant]

REACTIONS (3)
  - FEELING ABNORMAL [None]
  - FEELING JITTERY [None]
  - VISION BLURRED [None]
